FAERS Safety Report 4955603-2 (Version None)
Quarter: 2006Q1

REPORT INFORMATION
  Report Type: 
  Country: None (occurrence: None)
  Receive Date: 20060328
  Receipt Date: 20060317
  Transmission Date: 20060701
  Serious: Yes (Hospitalization)
  Sender: FDA-Public Use
  Company Number: US-MERCK-0603USA03051

PATIENT
  Age: 71 Year
  Sex: Male
  Weight: 100 kg

DRUGS (7)
  1. VIOXX [Suspect]
     Indication: ARTHRITIS
     Route: 048
     Dates: start: 20000807, end: 20040930
  2. ATENOLOL [Concomitant]
     Route: 065
  3. COUMADIN [Concomitant]
     Route: 065
  4. ENALAPRIL MALEATE [Concomitant]
     Route: 065
  5. LIPITOR [Concomitant]
     Route: 065
  6. PRAVACHOL [Concomitant]
     Route: 065
  7. ULTRAM [Concomitant]
     Route: 065

REACTIONS (6)
  - ARTHRALGIA [None]
  - BACK PAIN [None]
  - CAROTID ARTERY OCCLUSION [None]
  - DRUG DOSE OMISSION [None]
  - PAIN IN EXTREMITY [None]
  - TRANSIENT ISCHAEMIC ATTACK [None]
